FAERS Safety Report 5528239-2 (Version None)
Quarter: 2007Q4

REPORT INFORMATION
  Report Type: 
  Country: None (occurrence: None)
  Receive Date: 20071128
  Receipt Date: 20071120
  Transmission Date: 20080405
  Serious: Yes (Disabling)
  Sender: FDA-Public Use
  Company Number: CA-PFIZER INC-2007092342

PATIENT
  Sex: Female

DRUGS (7)
  1. NORVASC [Suspect]
     Indication: HYPERTENSION
     Dosage: DAILY DOSE:5MG
     Route: 048
  2. NORVASC [Suspect]
     Dosage: DAILY DOSE:10MG
     Route: 048
  3. STOMATOLOGICALS, MOUTH PREPARATIONS [Suspect]
     Indication: DENTAL PROSTHESIS USER
  4. ACETYLSALICYLIC ACID SRT [Concomitant]
     Dosage: DAILY DOSE:80MG
     Route: 048
  5. DIAMICRON [Concomitant]
     Indication: DIABETES MELLITUS
     Dosage: DAILY DOSE:30MG
     Route: 048
  6. ALLOPURINOL [Concomitant]
     Indication: GOUT
     Dosage: DAILY DOSE:100MG
     Route: 048
  7. ALTACE [Concomitant]
     Indication: HYPERTENSION
     Dosage: DAILY DOSE:10MG
     Route: 048

REACTIONS (3)
  - CHEILITIS [None]
  - GINGIVAL SWELLING [None]
  - ORAL HERPES [None]
